FAERS Safety Report 8153562-5 (Version None)
Quarter: 2012Q1

REPORT INFORMATION
  Report Type: 
  Country: None (occurrence: None)
  Receive Date: 20120221
  Receipt Date: 20120213
  Transmission Date: 20120608
  Serious: Yes (Other)
  Sender: FDA-Public Use
  Company Number: FR-B.I. PHARMACEUTICALS,INC./RIDGEFIELD-2011-FF-01123FF

PATIENT
  Sex: Male

DRUGS (1)
  1. PRADAXA [Suspect]
     Indication: PROSTHESIS IMPLANTATION
     Route: 048

REACTIONS (3)
  - PHLEBITIS [None]
  - MECHANICAL ILEUS [None]
  - PULMONARY EMBOLISM [None]
